FAERS Safety Report 15077528 (Version 1)
Quarter: 2018Q2

REPORT INFORMATION
  Report Type: Spontaneous
  Country: US (occurrence: US)
  Receive Date: 20180607
  Receipt Date: 20180607
  Transmission Date: 20180711
  Serious: Yes (Disabling)
  Sender: FDA-Public Use
  Company Number: None

PATIENT
  Age: 35 Year
  Sex: Male
  Weight: 90 kg

DRUGS (9)
  1. TESTOSTERONE. [Concomitant]
     Active Substance: TESTOSTERONE
  2. INVEGA SUSTENNA [Suspect]
     Active Substance: PALIPERIDONE PALMITATE
     Indication: SCHIZOPHRENIA
     Dosage: ?          QUANTITY:1 INJECTION(S);OTHER FREQUENCY:1 MONTH;?
     Route: 030
  3. TAMSULOSIN [Concomitant]
     Active Substance: TAMSULOSIN
  4. ASPIRIN. [Concomitant]
     Active Substance: ASPIRIN
  5. ANASTROZOLE. [Concomitant]
     Active Substance: ANASTROZOLE
  6. DOXYCYCLINE. [Concomitant]
     Active Substance: DOXYCYCLINE
  7. SOME WHITE WILLOW BARK [Concomitant]
  8. GINGKO [Concomitant]
     Active Substance: GINKGO
  9. COLLAGEN [Concomitant]
     Active Substance: COLLAGEN

REACTIONS (13)
  - Somnolence [None]
  - Product quality issue [None]
  - Cognitive disorder [None]
  - Nausea [None]
  - Vomiting [None]
  - Impaired work ability [None]
  - Drug level decreased [None]
  - Pancreatitis acute [None]
  - Overdose [None]
  - Product appearance confusion [None]
  - Extrapyramidal disorder [None]
  - Grimacing [None]
  - Insomnia [None]

NARRATIVE: CASE EVENT DATE: 20180526
